FAERS Safety Report 11913894 (Version 2)
Quarter: 2016Q1

REPORT INFORMATION
  Report Type: Spontaneous
  Country: JP (occurrence: JP)
  Receive Date: 20160113
  Receipt Date: 20160127
  Transmission Date: 20160526
  Serious: Yes (Other)
  Sender: FDA-Public Use
  Company Number: JP-TEVA-2016-JP-000006J

PATIENT
  Age: 5 Decade
  Sex: Male

DRUGS (2)
  1. FAMOTIDINE 20 MG [Suspect]
     Active Substance: FAMOTIDINE
     Indication: PRODUCT USED FOR UNKNOWN INDICATION
     Route: 065
     Dates: start: 201503, end: 201511
  2. IMATINIB [Suspect]
     Active Substance: IMATINIB
     Route: 048

REACTIONS (1)
  - Renal impairment [Unknown]
